FAERS Safety Report 7290427-5 (Version None)
Quarter: 2011Q1

REPORT INFORMATION
  Report Type: 
  Country: None (occurrence: None)
  Receive Date: 20110208
  Receipt Date: 20110208
  Transmission Date: 20110831
  Serious: No
  Sender: FDA-Public Use
  Company Number: None

PATIENT
  Sex: Female

DRUGS (1)
  1. HUMIRA [Suspect]
     Indication: PSORIASIS
     Dosage: 80MG 1X SUBCUTANEOUSLY
     Route: 058
     Dates: start: 20110203

REACTIONS (4)
  - MUSCLE SPASMS [None]
  - GAIT DISTURBANCE [None]
  - PAIN IN EXTREMITY [None]
  - ERYTHEMA [None]
